FAERS Safety Report 21789135 (Version 1)
Quarter: 2022Q4

REPORT INFORMATION
  Report Type: Spontaneous
  Country: US (occurrence: None)
  Receive Date: 20221227
  Receipt Date: 20221227
  Transmission Date: 20230113
  Serious: Yes (Hospitalization)
  Sender: FDA-Public Use
  Company Number: None

PATIENT
  Age: 45 Year
  Sex: Female
  Weight: 137 kg

DRUGS (3)
  1. MARCAINE [Suspect]
     Active Substance: BUPIVACAINE HYDROCHLORIDE
     Indication: Previous caesarean section
     Dosage: FREQUENCY : ONCE;?
     Route: 024
     Dates: start: 20221214, end: 20221214
  2. MORPHINE [Concomitant]
     Active Substance: MORPHINE
     Dates: start: 20221214, end: 20221214
  3. FENTANYL [Concomitant]
     Active Substance: FENTANYL
     Dates: start: 20221214, end: 20221214

REACTIONS (1)
  - Drug ineffective [None]

NARRATIVE: CASE EVENT DATE: 20221214
